FAERS Safety Report 8337127-8 (Version None)
Quarter: 2012Q2

REPORT INFORMATION
  Report Type: 
  Country: None (occurrence: None)
  Receive Date: 20120504
  Receipt Date: 20110712
  Transmission Date: 20120825
  Serious: No
  Sender: FDA-Public Use
  Company Number: US-TEVA-2011003694

PATIENT
  Sex: Female

DRUGS (7)
  1. LEVOTHYROXINE SODIUM [Concomitant]
     Dates: start: 20090101
  2. DIAVAN [Concomitant]
     Dates: start: 20090101
  3. HYDROCHLOROTHIAZIDE [Concomitant]
  4. NUVIGIL [Suspect]
     Indication: FATIGUE
     Dosage: 250 MILLIGRAM;
     Route: 048
     Dates: start: 20110701, end: 20110701
  5. BACLOFEN [Concomitant]
     Dates: start: 20000101
  6. COPAXON [Concomitant]
     Dates: start: 20000101
  7. CYTOMEL [Concomitant]
     Dates: start: 20090101

REACTIONS (6)
  - HEART RATE INCREASED [None]
  - TREMOR [None]
  - DRUG INEFFECTIVE FOR UNAPPROVED INDICATION [None]
  - FEELING JITTERY [None]
  - HEART RATE ABNORMAL [None]
  - MALAISE [None]
